FAERS Safety Report 21069560 (Version 1)
Quarter: 2022Q3

REPORT INFORMATION
  Report Type: Spontaneous
  Country: US (occurrence: US)
  Receive Date: 20220712
  Receipt Date: 20220712
  Transmission Date: 20221027
  Serious: No
  Sender: FDA-Public Use
  Company Number: US-ASTELLAS-2022US016037

PATIENT
  Age: 71 Year
  Sex: Female

DRUGS (1)
  1. MYRBETRIQ [Suspect]
     Active Substance: MIRABEGRON
     Indication: Incontinence
     Route: 048
     Dates: start: 20220401

REACTIONS (8)
  - Gastric dilatation [Unknown]
  - Cough [Unknown]
  - Barium swallow abnormal [Unknown]
  - Gastrointestinal hypomotility [Unknown]
  - Oropharyngeal discomfort [Unknown]
  - Dyspepsia [Unknown]
  - Throat irritation [Unknown]
  - Epigastric discomfort [Unknown]
